APPROVED DRUG PRODUCT: KARBINAL ER
Active Ingredient: CARBINOXAMINE MALEATE
Strength: 4MG/5ML
Dosage Form/Route: SUSPENSION, EXTENDED RELEASE;ORAL
Application: N022556 | Product #001
Applicant: AYTU BIOSCIENCE INC
Approved: Mar 28, 2013 | RLD: Yes | RS: Yes | Type: RX

PATENTS:
Patent 9522191 | Expires: Jun 15, 2027
Patent 8062667 | Expires: Mar 29, 2029